FAERS Safety Report 10963450 (Version 1)
Quarter: 2015Q1

REPORT INFORMATION
  Report Type: Spontaneous
  Country: US (occurrence: None)
  Receive Date: 20150326
  Receipt Date: 20150326
  Transmission Date: 20150721
  Serious: Yes (Other)
  Sender: FDA-Public Use
  Company Number: 201503120

PATIENT
  Age: 56 Year
  Sex: Male

DRUGS (2)
  1. TESTIM [Suspect]
     Active Substance: TESTOSTERONE
     Indication: ERECTILE DYSFUNCTION
     Dosage: 2
     Route: 062
     Dates: start: 20131004
  2. TESTIM [Suspect]
     Active Substance: TESTOSTERONE
     Indication: BLOOD TESTOSTERONE DECREASED
     Dosage: 2
     Route: 062
     Dates: start: 20131004

REACTIONS (4)
  - Myocardial infarction [None]
  - Pain [None]
  - Anxiety [None]
  - Economic problem [None]

NARRATIVE: CASE EVENT DATE: 20140325
